FAERS Safety Report 17359425 (Version 4)
Quarter: 2020Q1

REPORT INFORMATION
  Report Type: Report from Study
  Country: TR (occurrence: TR)
  Receive Date: 20200203
  Receipt Date: 20200312
  Transmission Date: 20200409
  Serious: Yes (Hospitalization)
  Sender: FDA-Public Use
  Company Number: TR-ROCHE-2524659

PATIENT
  Age: 62 Year
  Sex: Male
  Weight: 73 kg

DRUGS (11)
  1. ATORVASTATINE [ATORVASTATIN] [Concomitant]
     Active Substance: ATORVASTATIN
     Indication: CARDIAC FAILURE
     Route: 048
     Dates: start: 20180810
  2. CARBOPLATIN. [Suspect]
     Active Substance: CARBOPLATIN
     Indication: TRANSITIONAL CELL CARCINOMA
     Dosage: UNIT DOSE 4.5MG/ML*MIN ON DAY 1 OF EACH 21 DAY CYCLE.?DATE OF MOST RECENT DOSE 300 MG OF CARBOPLATIN
     Route: 042
     Dates: start: 20180704
  3. METOPROLOL. [Concomitant]
     Active Substance: METOPROLOL
     Indication: CARDIAC FAILURE
     Route: 048
     Dates: start: 20180810
  4. CIPROFLOXACIN. [Concomitant]
     Active Substance: CIPROFLOXACIN
     Indication: URINARY TRACT INFECTION
     Route: 048
     Dates: start: 20191108
  5. GEMCITABINE. [Suspect]
     Active Substance: GEMCITABINE
     Indication: TRANSITIONAL CELL CARCINOMA
     Dosage: DAY 1 AND DAY 8 OF EACH 21 DAY CYCLE.?DATE OF  MOST RECENT DOSE 1520 MG/M2 OF GEMCITABINE PRIOR TO A
     Route: 042
     Dates: start: 20180704
  6. NITROFURANTOIN. [Concomitant]
     Active Substance: NITROFURANTOIN
     Indication: URINARY TRACT INFECTION
     Route: 048
     Dates: start: 20191108
  7. HYOSCINE BUTYLBROMIDE;PARACETAMOL [Concomitant]
     Indication: URINARY TRACT INFECTION
     Route: 048
     Dates: start: 20191108
  8. ACETYLSALICYLIC ACID [Concomitant]
     Active Substance: ASPIRIN
     Indication: CARDIAC FAILURE
     Route: 048
     Dates: start: 20180810
  9. FILGRASTIM [Concomitant]
     Active Substance: FILGRASTIM
     Indication: FEBRILE NEUTROPENIA
     Route: 058
     Dates: start: 20180725
  10. ATEZOLIZUMAB. [Suspect]
     Active Substance: ATEZOLIZUMAB
     Indication: TRANSITIONAL CELL CARCINOMA
     Dosage: DATE OF MOST RECENT DOSE OF ATEZOLIZUMAB TO AE ONSET ON 23/DEC/2019 AND 29/NOV/2019
     Route: 042
     Dates: start: 20180704
  11. PANTOPRAZOLE SODIUM SESQUIHYDRATE [Concomitant]
     Active Substance: PANTOPRAZOLE SODIUM
     Indication: CARDIAC FAILURE
     Route: 048
     Dates: start: 20180810

REACTIONS (2)
  - Urostomy complication [Recovered/Resolved]
  - Blood alkaline phosphatase increased [Recovering/Resolving]

NARRATIVE: CASE EVENT DATE: 20191129
